FAERS Safety Report 24581644 (Version 2)
Quarter: 2024Q4

REPORT INFORMATION
  Report Type: Spontaneous
  Country: US (occurrence: US)
  Receive Date: 20241105
  Receipt Date: 20241108
  Transmission Date: 20250114
  Serious: No
  Sender: ALKERMES
  Company Number: US-ALKERMES INC.-ALK-2024-002750

PATIENT
  Age: 48 Year
  Sex: Male

DRUGS (2)
  1. ARISTADA [Suspect]
     Active Substance: ARIPIPRAZOLE LAUROXIL
     Indication: Product used for unknown indication
     Dosage: 1064 MILLIGRAM, Q6WK
     Route: 030
  2. RISPERDAL [Concomitant]
     Active Substance: RISPERIDONE
     Indication: Product used for unknown indication
     Dosage: 0.5 MILLIGRAM, UNKNOWN
     Route: 065

REACTIONS (6)
  - Therapeutic response shortened [Unknown]
  - Depression [Unknown]
  - Delusion [Unknown]
  - Hallucination [Unknown]
  - Intrusive thoughts [Unknown]
  - Off label use [None]
